FAERS Safety Report 4850544-3 (Version None)
Quarter: 2005Q4

REPORT INFORMATION
  Report Type: 
  Country: None (occurrence: None)
  Receive Date: 20051212
  Receipt Date: 20050915
  Transmission Date: 20060501
  Serious: Yes (Hospitalization)
  Sender: FDA-Public Use
  Company Number: JP-SOLVAY-00305002961

PATIENT
  Age: 3297 Day
  Sex: Male
  Weight: 21 kg

DRUGS (3)
  1. LUVOX [Suspect]
     Indication: AUTISM SPECTRUM DISORDER
     Dosage: DAILY DOSE: 25 MILLIGRAM(S)
     Route: 048
     Dates: start: 20050726, end: 20050915
  2. BANAN [Suspect]
     Indication: DENTAL TREATMENT
     Dosage: DAILY DOSE: 50 MILLIGRAM(S)
     Route: 048
     Dates: start: 20050913, end: 20050913
  3. ALESION [Suspect]
     Indication: URTICARIA
     Dosage: DAILY DOSE: 6 MILLIGRAM(S)
     Route: 048
     Dates: start: 20050914, end: 20050914

REACTIONS (4)
  - ERYTHEMA [None]
  - FACE OEDEMA [None]
  - FOOD INTERACTION [None]
  - URTICARIA [None]
